FAERS Safety Report 9047013 (Version 1)
Quarter: 2013Q1

REPORT INFORMATION
  Report Type: Spontaneous
  Country: US (occurrence: None)
  Receive Date: 20130129
  Receipt Date: 20130129
  Transmission Date: 20140127
  Serious: Yes (Hospitalization)
  Sender: FDA-Public Use
  Company Number: None

PATIENT
  Age: 45 Year
  Sex: Female
  Weight: 61.24 kg

DRUGS (1)
  1. LIALDA [Suspect]
     Indication: COLITIS
     Dosage: 3 ONCE DAILY
     Route: 048
     Dates: start: 20130102, end: 20130112

REACTIONS (6)
  - Drug hypersensitivity [None]
  - Influenza like illness [None]
  - Pyrexia [None]
  - Pain [None]
  - Neck pain [None]
  - Presyncope [None]
